FAERS Safety Report 8161641-1 (Version None)
Quarter: 2012Q1

REPORT INFORMATION
  Report Type: 
  Country: None (occurrence: None)
  Receive Date: 20120224
  Receipt Date: 20120222
  Transmission Date: 20120608
  Serious: Yes (Other)
  Sender: FDA-Public Use
  Company Number: US-PFIZER INC-2012047373

PATIENT
  Sex: Female

DRUGS (2)
  1. CENTRUM SILVER ULTRA WOMEN'S [Suspect]
     Indication: VITAMIN SUPPLEMENTATION
     Dosage: UNK, 1X/DAY
     Route: 048
     Dates: end: 20120215
  2. LIPITOR [Suspect]
     Indication: BLOOD CHOLESTEROL INCREASED
     Dosage: 20 MG, 1X/DAY
     Route: 048

REACTIONS (4)
  - ALOPECIA [None]
  - CHOKING [None]
  - THYROID FUNCTION TEST ABNORMAL [None]
  - BLOOD CHOLESTEROL INCREASED [None]
